FAERS Safety Report 11572147 (Version 3)
Quarter: 2015Q4

REPORT INFORMATION
  Report Type: Spontaneous
  Country: US (occurrence: US)
  Receive Date: 20150929
  Receipt Date: 20151130
  Transmission Date: 20160304
  Serious: Yes (Other)
  Sender: FDA-Public Use
  Company Number: US-SA-2015SA139461

PATIENT
  Age: 86 Year
  Sex: Female

DRUGS (10)
  1. PROTONIX [Concomitant]
     Active Substance: PANTOPRAZOLE SODIUM
  2. HYDROCHLOROTHIAZIDE WITH TRIAMTERENE [Concomitant]
     Active Substance: HYDROCHLOROTHIAZIDE\TRIAMTERENE
  3. HYDROCHLOROTHIAZIDE. [Concomitant]
     Active Substance: HYDROCHLOROTHIAZIDE
  4. AUBAGIO [Suspect]
     Active Substance: TERIFLUNOMIDE
     Indication: MULTIPLE SCLEROSIS
     Route: 048
  5. METFORMIN HYDROCHLORIDE. [Concomitant]
     Active Substance: METFORMIN HYDROCHLORIDE
  6. MODAFINIL. [Concomitant]
     Active Substance: MODAFINIL
  7. GABAPENTIN. [Concomitant]
     Active Substance: GABAPENTIN
  8. PREDNISONE. [Concomitant]
     Active Substance: PREDNISONE
  9. SIMVASTATIN. [Concomitant]
     Active Substance: SIMVASTATIN
  10. VALSARTAN. [Concomitant]
     Active Substance: VALSARTAN

REACTIONS (10)
  - Dizziness [Unknown]
  - Gait disturbance [Unknown]
  - Nausea [Unknown]
  - Fatigue [Unknown]
  - Constipation [Unknown]
  - Headache [Recovered/Resolved]
  - Diarrhoea [Unknown]
  - Decreased appetite [Unknown]
  - Multiple sclerosis relapse [Unknown]
  - Alopecia [Unknown]

NARRATIVE: CASE EVENT DATE: 201510
